FAERS Safety Report 6524862-7 (Version None)
Quarter: 2010Q1

REPORT INFORMATION
  Report Type: 
  Country: None (occurrence: None)
  Receive Date: 20100104
  Receipt Date: 20091201
  Transmission Date: 20100710
  Serious: No
  Sender: FDA-Public Use
  Company Number: US-BAYER-200942306NA

PATIENT
  Age: 75 Year
  Sex: Female

DRUGS (1)
  1. PRECOSE [Suspect]
     Indication: DIABETES MELLITUS
     Dosage: TOTAL DAILY DOSE: 300 MG  UNIT DOSE: 100 MG
     Dates: start: 19890101

REACTIONS (1)
  - FLATULENCE [None]
